FAERS Safety Report 24119494 (Version 1)
Quarter: 2024Q3

REPORT INFORMATION
  Report Type: Spontaneous
  Country: NL (occurrence: NL)
  Receive Date: 20240722
  Receipt Date: 20240722
  Transmission Date: 20241017
  Serious: Yes (Life-Threatening, Hospitalization, Other)
  Sender: MERCK
  Company Number: None

PATIENT
  Age: 58 Year
  Sex: Female
  Weight: 55.8 kg

DRUGS (5)
  1. PEMBROLIZUMAB [Suspect]
     Active Substance: PEMBROLIZUMAB
     Indication: Non-small cell lung cancer stage IV
     Dosage: 200MG IV
     Route: 042
     Dates: start: 20240401, end: 20240521
  2. CARBOPLATIN [Concomitant]
     Active Substance: CARBOPLATIN
  3. PEMETREXED [Concomitant]
     Active Substance: PEMETREXED
  4. LISINOPRIL [Concomitant]
     Active Substance: LISINOPRIL
     Dosage: 10 MILLIGRAM
  5. AMLODIPINE [Concomitant]
     Active Substance: AMLODIPINE BESYLATE
     Dosage: 5 MILLIGRAM

REACTIONS (1)
  - Thrombotic thrombocytopenic purpura [Recovering/Resolving]
